FAERS Safety Report 15692197 (Version 6)
Quarter: 2019Q4

REPORT INFORMATION
  Report Type: Report from Study
  Country: US (occurrence: US)
  Receive Date: 20181205
  Receipt Date: 20191213
  Transmission Date: 20200122
  Serious: Yes (Other)
  Sender: FDA-Public Use
  Company Number: PHEH2018US050263

PATIENT
  Age: 75 Year
  Sex: Female

DRUGS (3)
  1. TASIGNA [Suspect]
     Active Substance: NILOTINIB
     Indication: CHRONIC MYELOID LEUKAEMIA
  2. GLEEVEC [Suspect]
     Active Substance: IMATINIB MESYLATE
     Indication: CHRONIC MYELOID LEUKAEMIA
     Dosage: 400 MG, QD
     Route: 048
     Dates: start: 20181003, end: 20190103
  3. TASIGNA [Suspect]
     Active Substance: NILOTINIB
     Indication: PLASMA CELL MYELOMA
     Dosage: 150 MG, BID
     Route: 048

REACTIONS (8)
  - Headache [Recovered/Resolved]
  - Fall [Unknown]
  - Screaming [Recovered/Resolved]
  - Headache [Unknown]
  - Anxiety [Unknown]
  - Alopecia [Unknown]
  - Weight decreased [Unknown]
  - Stress [Unknown]

NARRATIVE: CASE EVENT DATE: 20181003
